FAERS Safety Report 5820071-5 (Version None)
Quarter: 2008Q3

REPORT INFORMATION
  Report Type: 
  Country: None (occurrence: None)
  Receive Date: 20080724
  Receipt Date: 20080716
  Transmission Date: 20090109
  Serious: Yes (Other)
  Sender: FDA-Public Use
  Company Number: BR-JNJFOC-20080704589

PATIENT
  Age: 64 Year
  Sex: Female
  Weight: 51 kg

DRUGS (2)
  1. HALDOL [Suspect]
     Indication: DEPRESSION
     Dosage: DOSE IS 5 DROPS IN BREAKFAST AND 5 DROPS IN LUNCH
  2. AMYTRIL [Concomitant]
     Indication: DEPRESSION
     Route: 048

REACTIONS (8)
  - DIZZINESS [None]
  - DYSPNOEA [None]
  - EYE IRRITATION [None]
  - HEART RATE IRREGULAR [None]
  - OFF LABEL USE [None]
  - SKIN LESION [None]
  - SOMNOLENCE [None]
  - TREMOR [None]
